FAERS Safety Report 5026676-6 (Version None)
Quarter: 2006Q2

REPORT INFORMATION
  Report Type: 
  Country: None (occurrence: None)
  Receive Date: 20060615
  Receipt Date: 20060608
  Transmission Date: 20061013
  Serious: Yes (Other)
  Sender: FDA-Public Use
  Company Number: CH-GLAXOSMITHKLINE-B0427443A

PATIENT
  Age: 53 Year
  Sex: Female

DRUGS (2)
  1. ZYBAN [Suspect]
     Indication: SMOKING CESSATION THERAPY
     Dosage: 300MG UNKNOWN
     Route: 048
     Dates: start: 20060409, end: 20060417
  2. TAMOXIFEN [Concomitant]
     Indication: BREAST CANCER
     Route: 048

REACTIONS (5)
  - DERMATITIS EXFOLIATIVE [None]
  - PRURITUS [None]
  - PSORIASIS [None]
  - RASH PUSTULAR [None]
  - SKIN EXFOLIATION [None]
